FAERS Safety Report 4533958-0 (Version None)
Quarter: 2004Q4

REPORT INFORMATION
  Report Type: 
  Country: None (occurrence: None)
  Receive Date: 20041221
  Receipt Date: 20041221
  Transmission Date: 20050328
  Serious: Yes (Life-Threatening, Hospitalization)
  Sender: FDA-Public Use
  Company Number: None

PATIENT
  Age: 51 Year
  Sex: Female
  Weight: 52 kg

DRUGS (1)
  1. SIMPLY SLEEP   25MG  TYLENOL [Suspect]
     Indication: INSOMNIA
     Dosage: 2 CAPLETS  AT BEDTIME ORAL
     Route: 048

REACTIONS (4)
  - INTENTIONAL OVERDOSE [None]
  - MARITAL PROBLEM [None]
  - MEDICATION ERROR [None]
  - SUICIDE ATTEMPT [None]
